FAERS Safety Report 11195276 (Version 1)
Quarter: 2015Q2

REPORT INFORMATION
  Report Type: Spontaneous
  Country: US (occurrence: None)
  Receive Date: 20150615
  Receipt Date: 20150615
  Transmission Date: 20150821
  Serious: Yes (Other)
  Sender: FDA-Public Use
  Company Number: None

PATIENT
  Age: 22 Year
  Sex: Female
  Weight: 65.77 kg

DRUGS (3)
  1. BUPROPION 150 MG [Suspect]
     Active Substance: BUPROPION
     Indication: ANXIETY DISORDER
     Route: 048
     Dates: start: 20150518, end: 20150612
  2. BUPROPION 150 MG [Suspect]
     Active Substance: BUPROPION
     Indication: DEPRESSION
     Route: 048
     Dates: start: 20150518, end: 20150612
  3. MICROGESTIN [Concomitant]
     Active Substance: ETHINYL ESTRADIOL\NORETHINDRONE ACETATE

REACTIONS (7)
  - Anxiety [None]
  - Feeling of despair [None]
  - Disturbance in attention [None]
  - Product quality issue [None]
  - Disease recurrence [None]
  - Fatigue [None]
  - Product substitution issue [None]

NARRATIVE: CASE EVENT DATE: 20150518
